FAERS Safety Report 23358981 (Version 1)
Quarter: 2024Q1

REPORT INFORMATION
  Report Type: Spontaneous
  Country: CN (occurrence: CN)
  Receive Date: 20240102
  Receipt Date: 20240102
  Transmission Date: 20240410
  Serious: Yes (Other)
  Sender: FDA-Public Use
  Company Number: CN-PFIZER INC-PV202300208082

PATIENT
  Age: 33 Year
  Sex: Female
  Weight: 58 kg

DRUGS (1)
  1. IBRANCE [Suspect]
     Active Substance: PALBOCICLIB
     Indication: Breast cancer
     Dosage: 125 MG, QD FOR 21 CONSECUTIVE DAYS THEN STOP FOR 7 DAYS (3/1 DOSING REGIMEN), AND 28 DAYS CYCLE
     Route: 048
     Dates: start: 20230310, end: 20231216

REACTIONS (1)
  - Myelosuppression [Unknown]

NARRATIVE: CASE EVENT DATE: 20231216
